FAERS Safety Report 17084881 (Version 3)
Quarter: 2020Q2

REPORT INFORMATION
  Report Type: Report from Study
  Country: US (occurrence: US)
  Receive Date: 20191127
  Receipt Date: 20200424
  Transmission Date: 20200713
  Serious: Yes (Death, Hospitalization, Other)
  Sender: FDA-Public Use
  Company Number: NVSC2019US050345

PATIENT
  Age: 55 Year
  Sex: Female

DRUGS (2)
  1. COSENTYX [Suspect]
     Active Substance: SECUKINUMAB
     Indication: PSORIASIS
     Dosage: 300 MG, QMO
     Route: 058
     Dates: start: 201809
  2. COSENTYX [Suspect]
     Active Substance: SECUKINUMAB
     Indication: PSORIATIC ARTHROPATHY
     Dosage: 300 MG, QMO
     Route: 058
     Dates: start: 201909

REACTIONS (5)
  - Escherichia sepsis [Unknown]
  - Device issue [Unknown]
  - Pneumonia [Fatal]
  - Incorrect dose administered [Unknown]
  - Escherichia urinary tract infection [Unknown]

NARRATIVE: CASE EVENT DATE: 20191125
